FAERS Safety Report 14901431 (Version 1)
Quarter: 2018Q2

REPORT INFORMATION
  Report Type: Spontaneous
  Country: US (occurrence: US)
  Receive Date: 20180427
  Receipt Date: 20180427
  Transmission Date: 20180711
  Serious: Yes (Hospitalization, Other)
  Sender: FDA-Public Use
  Company Number: None

PATIENT
  Age: 57 Year
  Sex: Female
  Weight: 55 kg

DRUGS (4)
  1. EPCLUSA [Suspect]
     Active Substance: SOFOSBUVIR\VELPATASVIR
     Indication: CHRONIC HEPATITIS C
     Route: 048
     Dates: start: 20170626, end: 20171013
  2. RILPIVIRINE [Concomitant]
     Active Substance: RILPIVIRINE
     Dates: start: 20151201
  3. LAMIVUDINE. [Concomitant]
     Active Substance: LAMIVUDINE
     Dates: start: 20151201
  4. DOLUTEGRAVIR [Concomitant]
     Active Substance: DOLUTEGRAVIR
     Dates: start: 20151201

REACTIONS (3)
  - Gait disturbance [None]
  - Musculoskeletal disorder [None]
  - Eosinophilic fasciitis [None]

NARRATIVE: CASE EVENT DATE: 20171114
